FAERS Safety Report 6247365-6 (Version None)
Quarter: 2009Q2

REPORT INFORMATION
  Report Type: 
  Country: None (occurrence: None)
  Receive Date: 20090626
  Receipt Date: 20090616
  Transmission Date: 20091009
  Serious: Yes (Hospitalization)
  Sender: FDA-Public Use
  Company Number: B0579125A

PATIENT
  Sex: Male

DRUGS (4)
  1. AVANDAMET [Suspect]
     Route: 048
     Dates: end: 20090611
  2. TAHOR [Suspect]
     Route: 048
     Dates: end: 20090611
  3. MICARDIS [Suspect]
     Route: 048
  4. LODOZ [Suspect]
     Route: 048

REACTIONS (6)
  - BLOOD CREATINE PHOSPHOKINASE INCREASED [None]
  - FALL [None]
  - HEPATIC STEATOSIS [None]
  - MUSCULAR WEAKNESS [None]
  - RHABDOMYOLYSIS [None]
  - TRANSAMINASES INCREASED [None]
